FAERS Safety Report 5227815-4 (Version None)
Quarter: 2007Q1

REPORT INFORMATION
  Report Type: 
  Country: None (occurrence: None)
  Receive Date: 20070202
  Receipt Date: 20070122
  Transmission Date: 20070707
  Serious: Yes (Other)
  Sender: FDA-Public Use
  Company Number: US-PFIZER INC-2007006411

PATIENT
  Age: 66 Year
  Sex: Female
  Weight: 70.8 kg

DRUGS (2)
  1. LYRICA [Suspect]
     Indication: TRIGEMINAL NEURALGIA
  2. FOSAMAX [Concomitant]

REACTIONS (2)
  - ERYTHEMA [None]
  - LIP SWELLING [None]
